FAERS Safety Report 23908936 (Version 1)
Quarter: 2024Q2

REPORT INFORMATION
  Report Type: Spontaneous
  Country: US (occurrence: US)
  Receive Date: 20240528
  Receipt Date: 20240528
  Transmission Date: 20240716
  Serious: No
  Sender: FDA-Public Use
  Company Number: HIKM2400247

PATIENT
  Sex: Male

DRUGS (1)
  1. TESTOSTERONE CYPIONATE [Suspect]
     Active Substance: TESTOSTERONE CYPIONATE
     Indication: Androgen deficiency
     Dosage: 0.8 MILLILITER, WEEKLY
     Route: 030
     Dates: start: 2007

REACTIONS (2)
  - Abdominal pain upper [Recovered/Resolved]
  - Poor quality product administered [Unknown]
